FAERS Safety Report 14578651 (Version 2)
Quarter: 2018Q1

REPORT INFORMATION
  Report Type: Spontaneous
  Country: PL (occurrence: PL)
  Receive Date: 20180227
  Receipt Date: 20180228
  Transmission Date: 20180509
  Serious: Yes (Death, Life-Threatening, Hospitalization, Disabling, Other)
  Sender: FDA-Public Use
  Company Number: PL-SA-2018SA044076

PATIENT
  Age: 47 Year
  Sex: Female

DRUGS (8)
  1. MEROPENEM. [Suspect]
     Active Substance: MEROPENEM
     Indication: KLEBSIELLA INFECTION
     Dosage: 3 X 1 G
     Route: 042
     Dates: start: 20160704
  2. VANCOMYCIN [Concomitant]
     Active Substance: VANCOMYCIN
     Indication: CLOSTRIDIUM DIFFICILE INFECTION
     Route: 048
     Dates: end: 2016
  3. COLISTIN [Suspect]
     Active Substance: COLISTIN
     Indication: KLEBSIELLA INFECTION
     Dosage: 4 X 2 MILLION
     Route: 042
     Dates: start: 20160704
  4. COLISTIN [Suspect]
     Active Substance: COLISTIN
     Indication: URINARY TRACT INFECTION BACTERIAL
     Dosage: 4 X 2 MILLION
     Route: 042
     Dates: start: 20160704
  5. RIFAMPICIN [Suspect]
     Active Substance: RIFAMPIN
     Indication: KLEBSIELLA INFECTION
     Dosage: 2 X 600 MG
     Route: 048
     Dates: start: 20160704
  6. FLUCONAZOLE. [Concomitant]
     Active Substance: FLUCONAZOLE
     Indication: ANTIFUNGAL TREATMENT
     Route: 042
     Dates: end: 2016
  7. RIFAMPICIN [Suspect]
     Active Substance: RIFAMPIN
     Indication: URINARY TRACT INFECTION
     Dosage: 2 X 600 MG
     Route: 048
     Dates: start: 20160704
  8. METRONIDAZOLE. [Concomitant]
     Active Substance: METRONIDAZOLE
     Indication: CLOSTRIDIUM DIFFICILE INFECTION
     Route: 042
     Dates: end: 2016

REACTIONS (9)
  - Cardiac failure [Fatal]
  - Acute kidney injury [Fatal]
  - Respiratory failure [Fatal]
  - Drug ineffective [Fatal]
  - Klebsiella infection [Fatal]
  - Pyrexia [Fatal]
  - Impaired gastric emptying [Fatal]
  - Multiple organ dysfunction syndrome [Fatal]
  - Cardiac arrest [Fatal]

NARRATIVE: CASE EVENT DATE: 2016
